FAERS Safety Report 23170513 (Version 1)
Quarter: 2023Q4

REPORT INFORMATION
  Report Type: Other
  Country: IT (occurrence: IT)
  Receive Date: 20231110
  Receipt Date: 20231110
  Transmission Date: 20240109
  Serious: Yes (Other)
  Sender: FDA-Public Use
  Company Number: IT-IBSA PHARMA INC.-2023IBS000797

PATIENT
  Age: 40 Year
  Sex: Male

DRUGS (1)
  1. TIROSINT [Suspect]
     Active Substance: LEVOTHYROXINE SODIUM
     Indication: Goitre
     Dosage: 50 MICROGRAM
     Route: 048
     Dates: start: 20231023, end: 20231023

REACTIONS (2)
  - Throat tightness [None]
  - Drug hypersensitivity [None]

NARRATIVE: CASE EVENT DATE: 20231023
